FAERS Safety Report 11652790 (Version 2)
Quarter: 2015Q4

REPORT INFORMATION
  Report Type: Report from Study
  Country: US (occurrence: US)
  Receive Date: 20151022
  Receipt Date: 20151120
  Transmission Date: 20160304
  Serious: Yes (Hospitalization)
  Sender: FDA-Public Use
  Company Number: US-BAYER-2015-178255

PATIENT
  Age: 82 Year
  Sex: Male

DRUGS (2)
  1. NEXAVAR [Suspect]
     Active Substance: SORAFENIB
     Indication: HEPATIC CANCER
     Dosage: 400 MG, BID
     Route: 048
  2. NEXAVAR [Suspect]
     Active Substance: SORAFENIB
     Indication: HEPATIC CANCER
     Dosage: 400MG IN MORNING AND 200MG IN EVENING
     Route: 048
     Dates: start: 20120911

REACTIONS (9)
  - Gastric disorder [None]
  - Diarrhoea [None]
  - Vomiting [None]
  - Adverse event [None]
  - Enterocolitis infectious [None]
  - Diarrhoea [Recovering/Resolving]
  - Drug dose omission [None]
  - Infection [None]
  - Abdominal pain upper [None]

NARRATIVE: CASE EVENT DATE: 20150421
